FAERS Safety Report 23024292 (Version 1)
Quarter: 2023Q4

REPORT INFORMATION
  Report Type: Spontaneous
  Country: FR (occurrence: FR)
  Receive Date: 20231004
  Receipt Date: 20231004
  Transmission Date: 20240110
  Serious: Yes (Death, Hospitalization, Other)
  Sender: FDA-Public Use
  Company Number: FR-EMA-DD-20180822-ngevhprod-144340

PATIENT
  Age: 39 Year
  Sex: Female

DRUGS (15)
  1. EPIRUBICIN [Suspect]
     Active Substance: EPIRUBICIN
     Indication: Breast cancer
     Dosage: UNK
     Route: 065
  2. EPIRUBICIN [Suspect]
     Active Substance: EPIRUBICIN
     Dosage: 100 MILLIGRAM/SQ. METER
     Route: 065
  3. TAMOXIFEN [Suspect]
     Active Substance: TAMOXIFEN
     Indication: Breast cancer
     Dosage: UNK
     Route: 048
     Dates: start: 1993
  4. FLUOROURACIL [Suspect]
     Active Substance: FLUOROURACIL
     Indication: Breast cancer
     Dosage: UNK
     Route: 065
  5. CYCLOPHOSPHAMIDE [Suspect]
     Active Substance: CYCLOPHOSPHAMIDE
     Indication: Breast cancer
     Dosage: UNK
     Route: 065
  6. CYCLOPHOSPHAMIDE [Suspect]
     Active Substance: CYCLOPHOSPHAMIDE
     Dosage: 60 MG/KG, (D-5 AND D-4)
     Route: 065
  7. IDARUBICIN [Suspect]
     Active Substance: IDARUBICIN
     Indication: Product used for unknown indication
     Dosage: 8 MG/M2, CYCLIC (5+7)
     Route: 065
     Dates: start: 200801
  8. CYCLOSPORINE [Suspect]
     Active Substance: CYCLOSPORINE
     Indication: Prophylaxis against graft versus host disease
     Dosage: 10 UNK
     Route: 042
  9. FLUOROURACIL [Suspect]
     Active Substance: FLUOROURACIL
     Indication: Breast cancer
     Dosage: 500 MG/M2, CYCLIC (6 CYCLES)
     Route: 065
  10. MYCOPHENOLATE MOFETIL [Suspect]
     Active Substance: MYCOPHENOLATE MOFETIL
     Indication: Prophylaxis against graft versus host disease
     Dosage: UNK
     Route: 065
  11. MITOXANTRONE [Suspect]
     Active Substance: MITOXANTRONE HYDROCHLORIDE
     Indication: Breast cancer
     Dosage: UNK
     Route: 065
     Dates: start: 1993
  12. VINCRISTINE SULFATE [Suspect]
     Active Substance: VINCRISTINE SULFATE
     Indication: Breast cancer
     Dosage: UNK
     Route: 065
     Dates: start: 1993
  13. FLUDARABINE [Concomitant]
     Active Substance: FLUDARABINE PHOSPHATE
     Indication: Product used for unknown indication
     Dosage: 25 MG/M2, (D-6, D-5 AND D-4)
     Route: 065
  14. CYTARABINE [Concomitant]
     Active Substance: CYTARABINE
     Indication: Acute myeloid leukaemia
     Dosage: 2000 MG/M2, CYCLIC (2+4)
     Route: 065
  15. CYTARABINE [Concomitant]
     Active Substance: CYTARABINE
     Dosage: 200 MG/M2, CYCLIC (5+7)
     Route: 065
     Dates: start: 200801

REACTIONS (19)
  - Multiple organ dysfunction syndrome [Fatal]
  - Second primary malignancy [Unknown]
  - Acute myeloid leukaemia [Unknown]
  - Graft versus host disease in gastrointestinal tract [Unknown]
  - Malignant pleural effusion [Unknown]
  - Cardiotoxicity [Unknown]
  - Chest pain [Unknown]
  - Right ventricular enlargement [Unknown]
  - Depressed level of consciousness [Unknown]
  - Ejection fraction decreased [Unknown]
  - Tachycardia [Unknown]
  - Tricuspid valve incompetence [Unknown]
  - Human herpesvirus 6 infection [Unknown]
  - Pericardial effusion [Unknown]
  - Pyrexia [Unknown]
  - Liver disorder [Unknown]
  - Generalised oedema [Unknown]
  - Pneumonia [Unknown]
  - Product use in unapproved indication [Unknown]

NARRATIVE: CASE EVENT DATE: 19930101
